FAERS Safety Report 14674666 (Version 1)
Quarter: 2018Q1

REPORT INFORMATION
  Report Type: Spontaneous
  Country: GB (occurrence: GB)
  Receive Date: 20180323
  Receipt Date: 20180323
  Transmission Date: 20180509
  Serious: Yes (Other)
  Sender: FDA-Public Use
  Company Number: GB-AUROBINDO-AUR-APL-2018-015884

PATIENT
  Age: 78 Year
  Sex: Female

DRUGS (2)
  1. GABAPENTIN. [Suspect]
     Active Substance: GABAPENTIN
     Indication: VERTEBRAL OSTEOPHYTE
     Dosage: 900 MILLIGRAM, ONCE A DAY
     Route: 065
  2. NEFOPAM [Suspect]
     Active Substance: NEFOPAM
     Indication: VERTEBRAL OSTEOPHYTE
     Dosage: 120 MILLIGRAM, ONCE A DAY
     Route: 065

REACTIONS (1)
  - Therapeutic response unexpected [Unknown]
